FAERS Safety Report 8605725 (Version 2)
Quarter: 2014Q3

REPORT INFORMATION
  Report Type: Report from Study
  Country: DE (occurrence: NL)
  Receive Date: 20120608
  Receipt Date: 20140826
  Transmission Date: 20150326
  Serious: Yes (Death, Hospitalization)
  Sender: FDA-Public Use
  Company Number: DE-ACTELION-A-US2012-65883

PATIENT
  Age: 71 Year
  Sex: Female

DRUGS (1)
  1. VENTAVIS [Suspect]
     Active Substance: ILOPROST
     Indication: PULMONARY ARTERIAL HYPERTENSION
     Dosage: 5 UG, Q4H
     Route: 055
     Dates: start: 20100315

REACTIONS (7)
  - Condition aggravated [Not Recovered/Not Resolved]
  - Brain injury [Not Recovered/Not Resolved]
  - Hypoxia [Fatal]
  - Osteoporosis [Not Recovered/Not Resolved]
  - Pulmonary arterial hypertension [Fatal]
  - Delirium [Not Recovered/Not Resolved]
  - General physical health deterioration [Not Recovered/Not Resolved]

NARRATIVE: CASE EVENT DATE: 2011
